FAERS Safety Report 8063693-6 (Version None)
Quarter: 2011Q4

REPORT INFORMATION
  Report Type: 
  Country: None (occurrence: None)
  Receive Date: 20111220
  Receipt Date: 20110325
  Transmission Date: 20120403
  Serious: Yes (Other)
  Sender: FDA-Public Use
  Company Number: 2008001043

PATIENT
  Sex: Male

DRUGS (5)
  1. OXYFAST (LIQUID) [Concomitant]
  2. FENTANYL CITRATE [Suspect]
     Indication: BREAKTHROUGH PAIN
     Dosage: )1200 MCG, 4 /DAY PRN), BU
     Route: 002
     Dates: start: 20070101
  3. MORPHINE SULFATE [Concomitant]
  4. KADIAN (100 MILLIGRAM) [Concomitant]
  5. HYDROMORPHONE (TABLET) [Concomitant]

REACTIONS (1)
  - DENTAL CARIES [None]
